FAERS Safety Report 24430342 (Version 3)
Quarter: 2025Q2

REPORT INFORMATION
  Report Type: Spontaneous
  Country: US (occurrence: US)
  Receive Date: 20241013
  Receipt Date: 20250415
  Transmission Date: 20250716
  Serious: No
  Sender: SANOFI AVENTIS
  Company Number: US-SANOFI-02241904

PATIENT
  Age: 83 Year
  Sex: Female

DRUGS (14)
  1. DUPIXENT [Suspect]
     Active Substance: DUPILUMAB
     Indication: Neurodermatitis
     Dosage: 300 MG, QOW
     Route: 058
  2. MUPIROCIN [Concomitant]
     Active Substance: MUPIROCIN
  3. IVERMECTIN [Concomitant]
     Active Substance: IVERMECTIN
  4. LEVOTHYROXINE [Concomitant]
     Active Substance: LEVOTHYROXINE
  5. GENTAMICIN SULFATE [Concomitant]
     Active Substance: GENTAMICIN SULFATE
  6. ROSUVASTATIN [Concomitant]
     Active Substance: ROSUVASTATIN
  7. HYDROCORTISONE [Concomitant]
     Active Substance: HYDROCORTISONE
  8. PRAMIPEXOLE [Concomitant]
     Active Substance: PRAMIPEXOLE
  9. DULOXETINE HYDROCHLORIDE [Concomitant]
     Active Substance: DULOXETINE HYDROCHLORIDE
  10. JANUVIA [Concomitant]
     Active Substance: SITAGLIPTIN PHOSPHATE
  11. GABAPENTIN [Concomitant]
     Active Substance: GABAPENTIN
  12. FAMOTIDINE [Concomitant]
     Active Substance: FAMOTIDINE
  13. GLIPIZIDE [Concomitant]
     Active Substance: GLIPIZIDE
  14. FUROSEMIDE [Concomitant]
     Active Substance: FUROSEMIDE

REACTIONS (3)
  - Accidental exposure to product [Unknown]
  - Exposure via skin contact [Unknown]
  - Drug ineffective [Unknown]
